FAERS Safety Report 21086887 (Version 2)
Quarter: 2022Q3

REPORT INFORMATION
  Report Type: Spontaneous
  Country: US (occurrence: US)
  Receive Date: 20220715
  Receipt Date: 20220811
  Transmission Date: 20221026
  Serious: Yes (Other)
  Sender: FDA-Public Use
  Company Number: US-ALK-ABELLO A/S-2022AA002175

PATIENT

DRUGS (57)
  1. PLANTAGO LANCEOLATA POLLEN [Suspect]
     Active Substance: PLANTAGO LANCEOLATA POLLEN
     Indication: Skin test
     Dosage: 1:20 W/V
     Route: 023
     Dates: start: 20220601
  2. PLANTAGO LANCEOLATA POLLEN [Suspect]
     Active Substance: PLANTAGO LANCEOLATA POLLEN
     Dosage: 1:20, PERCUTANEOUS
     Route: 003
     Dates: start: 20220601
  3. BETULA PENDULA POLLEN [Suspect]
     Active Substance: BETULA PENDULA POLLEN
     Indication: Skin test
     Dosage: UNK
     Route: 023
     Dates: start: 20220601
  4. BETULA PENDULA POLLEN [Suspect]
     Active Substance: BETULA PENDULA POLLEN
     Dosage: 1:20, PERCUTANEOUS
     Route: 003
     Dates: start: 20220601
  5. POA PRATENSIS POLLEN [Suspect]
     Active Substance: POA PRATENSIS POLLEN
     Indication: Skin test
     Dosage: UNK
     Route: 023
     Dates: start: 20220601
  6. POA PRATENSIS POLLEN [Suspect]
     Active Substance: POA PRATENSIS POLLEN
     Dosage: 100.000 BAU/ML, PERCUTANEOUS
     Route: 003
     Dates: start: 20220601
  7. SALIX NIGRA POLLEN [Suspect]
     Active Substance: SALIX NIGRA POLLEN
     Indication: Skin test
     Dosage: UNK
     Route: 023
     Dates: start: 20220601
  8. SALIX NIGRA POLLEN [Suspect]
     Active Substance: SALIX NIGRA POLLEN
     Dosage: 1:20, PERCUTANEOUS
     Route: 003
     Dates: start: 20220601
  9. CHENOPODIUM ALBUM POLLEN [Suspect]
     Active Substance: CHENOPODIUM ALBUM POLLEN
     Indication: Skin test
     Dosage: UNK
     Route: 023
     Dates: start: 20220601
  10. CHENOPODIUM ALBUM POLLEN [Suspect]
     Active Substance: CHENOPODIUM ALBUM POLLEN
     Dosage: 1:20, PERCUTANEOUS
     Dates: start: 20220601
  11. FRAXINUS AMERICANA POLLEN [Suspect]
     Active Substance: FRAXINUS AMERICANA POLLEN
     Indication: Skin test
     Dosage: UNK
     Route: 023
     Dates: start: 20220601
  12. FRAXINUS AMERICANA POLLEN [Suspect]
     Active Substance: FRAXINUS AMERICANA POLLEN
     Dosage: 1:20, PERCUTANEOUS
     Route: 003
     Dates: start: 20220601
  13. ULMUS AMERICANA POLLEN [Suspect]
     Active Substance: ULMUS AMERICANA POLLEN
     Indication: Skin test
     Dosage: UNK
     Route: 023
     Dates: start: 20220601
  14. ULMUS AMERICANA POLLEN [Suspect]
     Active Substance: ULMUS AMERICANA POLLEN
     Dosage: 1:20, PERCUTANEOUS
     Dates: start: 20220601
  15. CARYA OVATA POLLEN [Suspect]
     Active Substance: CARYA OVATA POLLEN
     Indication: Skin test
     Dosage: UNK
     Route: 023
     Dates: start: 20220601
  16. CARYA OVATA POLLEN [Suspect]
     Active Substance: CARYA OVATA POLLEN
     Dosage: 1:20, PERCUTANEOUS
     Route: 003
     Dates: start: 20220601
  17. ACER SACCHARUM POLLEN [Suspect]
     Active Substance: ACER SACCHARUM POLLEN
     Indication: Skin test
     Dosage: UNK
     Route: 023
     Dates: start: 20220601
  18. ACER SACCHARUM POLLEN [Suspect]
     Active Substance: ACER SACCHARUM POLLEN
     Dosage: 1:20, PERCUTANEOUS
     Route: 003
     Dates: start: 20220601
  19. QUERCUS ALBA POLLEN [Suspect]
     Active Substance: QUERCUS ALBA POLLEN
     Indication: Skin test
     Dosage: UNK
     Route: 023
     Dates: start: 20220601
  20. QUERCUS ALBA POLLEN [Suspect]
     Active Substance: QUERCUS ALBA POLLEN
     Dosage: 1:20, PERCUTANEOUS
     Route: 003
     Dates: start: 20220601
  21. PINUS STROBUS POLLEN [Suspect]
     Active Substance: PINUS STROBUS POLLEN
     Indication: Skin test
     Dosage: 1:20, PERCUTANEOUS
     Dates: start: 20220601
  22. POPULUS ALBA POLLEN [Suspect]
     Active Substance: POPULUS ALBA POLLEN
     Indication: Skin test
     Dosage: UNK
     Route: 023
     Dates: start: 20220601
  23. POPULUS ALBA POLLEN [Suspect]
     Active Substance: POPULUS ALBA POLLEN
     Dosage: 1:20, PERCUTANEOUS
     Route: 003
     Dates: start: 20220601
  24. DACTYLIS GLOMERATA POLLEN [Suspect]
     Active Substance: DACTYLIS GLOMERATA POLLEN
     Indication: Skin test
     Dosage: UNK
     Route: 023
     Dates: start: 20220601
  25. DACTYLIS GLOMERATA POLLEN [Suspect]
     Active Substance: DACTYLIS GLOMERATA POLLEN
     Dosage: 100.000 BAU/ML, PERCUTANEOUS
     Route: 003
     Dates: start: 20220601
  26. ALLERGENIC EXTRACT- REDTOP AGROSTIS ALBA [Suspect]
     Active Substance: AGROSTIS GIGANTEA POLLEN
     Indication: Skin test
     Dosage: UNK
     Route: 023
     Dates: start: 20220601
  27. ALLERGENIC EXTRACT- REDTOP AGROSTIS ALBA [Suspect]
     Active Substance: AGROSTIS GIGANTEA POLLEN
     Dosage: 100.000 BAU/ML, PERCUTANEOUS
     Route: 003
     Dates: start: 20220601
  28. PHLEUM PRATENSE POLLEN [Suspect]
     Active Substance: PHLEUM PRATENSE POLLEN
     Indication: Skin test
     Dosage: UNK
     Route: 023
     Dates: start: 20220601
  29. PHLEUM PRATENSE POLLEN [Suspect]
     Active Substance: PHLEUM PRATENSE POLLEN
     Dosage: 100.000 BAU/ML, PERCUTANEOUS
     Dates: start: 20220601
  30. XANTHIUM STRUMARIUM POLLEN [Suspect]
     Active Substance: XANTHIUM STRUMARIUM POLLEN
     Indication: Skin test
     Dosage: UNK
     Route: 023
     Dates: start: 20220601
  31. XANTHIUM STRUMARIUM POLLEN [Suspect]
     Active Substance: XANTHIUM STRUMARIUM POLLEN
     Dosage: 100.000 BAU/ML, PERCUTANEOUS
     Route: 003
     Dates: start: 20220601
  32. IVA ANNUA POLLEN [Suspect]
     Active Substance: IVA ANNUA POLLEN
     Indication: Skin test
     Dosage: UNK
     Route: 023
     Dates: start: 20220601
  33. IVA ANNUA POLLEN [Suspect]
     Active Substance: IVA ANNUA POLLEN
     Dosage: 1:20, PERCUTANEOUS
     Route: 003
     Dates: start: 20220601
  34. AMBROSIA ARTEMISIIFOLIA POLLEN\AMBROSIA TRIFIDA POLLEN [Suspect]
     Active Substance: AMBROSIA ARTEMISIIFOLIA POLLEN\AMBROSIA TRIFIDA POLLEN
     Indication: Skin test
     Dosage: UNK
     Route: 023
     Dates: start: 20220601
  35. AMBROSIA ARTEMISIIFOLIA POLLEN\AMBROSIA TRIFIDA POLLEN [Suspect]
     Active Substance: AMBROSIA ARTEMISIIFOLIA POLLEN\AMBROSIA TRIFIDA POLLEN
     Dosage: 1:20, PERCUTANEOUS
     Route: 003
     Dates: start: 20220601
  36. DERMATOPHAGOIDES PTERONYSSINUS [Suspect]
     Active Substance: DERMATOPHAGOIDES PTERONYSSINUS
     Indication: Skin test
     Dosage: 10.000 AU/ML, PERCUTANEOUS
     Route: 003
     Dates: start: 20220601
  37. DERMATOPHAGOIDES FARINAE [Suspect]
     Active Substance: DERMATOPHAGOIDES FARINAE
     Indication: Skin test
     Dosage: 10.000 AU/ML, PERCUTANEOUS
     Dates: start: 20220601
  38. PERIPLANETA AMERICANA [Suspect]
     Active Substance: PERIPLANETA AMERICANA
     Indication: Skin test
     Dosage: UNK
     Route: 023
     Dates: start: 20220601
  39. PERIPLANETA AMERICANA [Suspect]
     Active Substance: PERIPLANETA AMERICANA
     Dosage: 1:20, PERCUTANEOUS
     Route: 003
     Dates: start: 20220601
  40. FELIS CATUS HAIR [Suspect]
     Active Substance: FELIS CATUS HAIR
     Indication: Skin test
     Dosage: UNK
     Route: 023
     Dates: start: 20220601
  41. FELIS CATUS HAIR [Suspect]
     Active Substance: FELIS CATUS HAIR
     Dosage: 10.000 BAU/ML, PERCUTANEOUS
     Route: 003
     Dates: start: 20220601
  42. CANIS LUPUS FAMILIARIS SKIN [Suspect]
     Active Substance: CANIS LUPUS FAMILIARIS SKIN
     Indication: Skin test
     Dosage: 1:20, PERCUTANEOUS
     Route: 003
     Dates: start: 20220601
  43. MUS MUSCULUS SKIN [Suspect]
     Active Substance: MUS MUSCULUS SKIN
     Indication: Skin test
     Dosage: 1:20, PERCUTANEOUS
     Route: 003
     Dates: start: 20220601
  44. ANAS PLATYRHYNCHOS FEATHER\ANSER ANSER FEATHER\GALLUS GALLUS FEATHER [Suspect]
     Active Substance: ANAS PLATYRHYNCHOS FEATHER\ANSER ANSER FEATHER\GALLUS GALLUS FEATHER
     Indication: Skin test
     Dosage: 1:20, PERCUTANEOUS
     Route: 003
     Dates: start: 20220601
  45. ASPERGILLUS FUMIGATUS [Suspect]
     Active Substance: ASPERGILLUS FUMIGATUS
     Indication: Skin test
     Dosage: UNK
     Route: 023
     Dates: start: 20220601
  46. ASPERGILLUS FUMIGATUS [Suspect]
     Active Substance: ASPERGILLUS FUMIGATUS
     Dosage: 1:20, PERCUTANEOUS
     Route: 003
     Dates: start: 20220601
  47. PENICILLIUM NOTATUM [Suspect]
     Active Substance: PENICILLIUM CHRYSOGENUM VAR. CHRYSOGENUM
     Indication: Skin test
     Dosage: UNK
     Route: 023
     Dates: start: 20220601
  48. PENICILLIUM NOTATUM [Suspect]
     Active Substance: PENICILLIUM CHRYSOGENUM VAR. CHRYSOGENUM
     Dosage: 1:20, PERCUTANEOUS
     Route: 003
     Dates: start: 20220601
  49. ALTERNARIA ALTERNATA [Suspect]
     Active Substance: ALTERNARIA ALTERNATA
     Indication: Skin test
     Dosage: UNK
     Route: 023
     Dates: start: 20220601
  50. CLADOSPORIUM CLADOSPORIOIDES [Suspect]
     Active Substance: CLADOSPORIUM CLADOSPORIOIDES
     Indication: Skin test
     Dosage: UNK
     Route: 023
     Dates: start: 20220601
  51. CLADOSPORIUM CLADOSPORIOIDES [Suspect]
     Active Substance: CLADOSPORIUM CLADOSPORIOIDES
     Dosage: UNK
     Route: 003
     Dates: start: 20220601
  52. STERILE DILUENT FOR ALLERGENIC EXTRACT NOS [Suspect]
     Active Substance: ALBUMIN HUMAN OR GLYCERIN OR PHENOL
     Indication: Skin test
     Dosage: 1:20, PERCUTANEOUS
     Route: 003
     Dates: start: 20220601
  53. STERILE DILUENT FOR ALLERGENIC EXTRACT NOS [Suspect]
     Active Substance: ALBUMIN HUMAN OR GLYCERIN OR PHENOL
     Dosage: UNK
     Route: 023
     Dates: start: 20220601
  54. HISTAMINE PHOSPHATE [Suspect]
     Active Substance: HISTAMINE PHOSPHATE
     Indication: Skin test
     Dosage: UNK
     Route: 023
     Dates: start: 20220601
  55. HISTAMINE PHOSPHATE [Suspect]
     Active Substance: HISTAMINE PHOSPHATE
     Dosage: UNK, PERCUTANEOUS
     Dates: start: 20220601
  56. HISTAMINE PHOSPHATE [Suspect]
     Active Substance: HISTAMINE PHOSPHATE
     Indication: Skin test
     Dosage: UNK
     Route: 023
     Dates: start: 20220601
  57. ALTERNARIA ALTERNATA [Suspect]
     Active Substance: ALTERNARIA ALTERNATA
     Indication: Skin test
     Dosage: UNK, PERCUTANEOUS
     Dates: start: 20220601

REACTIONS (3)
  - Anaphylactic reaction [Recovered/Resolved]
  - Skin test positive [Recovered/Resolved]
  - False negative investigation result [Unknown]

NARRATIVE: CASE EVENT DATE: 20220601
